FAERS Safety Report 23142545 (Version 1)
Quarter: 2023Q4

REPORT INFORMATION
  Report Type: Spontaneous
  Country: US (occurrence: None)
  Receive Date: 20231102
  Receipt Date: 20231102
  Transmission Date: 20240110
  Serious: Yes (Life-Threatening, Hospitalization, Other)
  Sender: FDA-Public Use
  Company Number: None

PATIENT
  Age: 81 Year
  Sex: Female
  Weight: 74.25 kg

DRUGS (11)
  1. ELIQUIS [Suspect]
     Active Substance: APIXABAN
     Indication: Atrial fibrillation
     Dosage: OTHER QUANTITY : 2 CAPSULE(S);?FREQUENCY : TWICE A DAY;?
     Route: 048
     Dates: start: 20191205, end: 20230719
  2. ELIQUIS [Suspect]
     Active Substance: APIXABAN
     Indication: Hypertension
  3. Metoprolol sucm50mg [Concomitant]
  4. Losartin 50mg [Concomitant]
  5. Rosuvastin  5mg [Concomitant]
  6. MULTAQ [Concomitant]
     Active Substance: DRONEDARONE
  7. LATANOPROST [Concomitant]
     Active Substance: LATANOPROST
  8. COENZYME Q10 [Concomitant]
     Active Substance: DIETARY SUPPLEMENT\UBIDECARENONE
  9. MINERALS\VITAMINS [Concomitant]
     Active Substance: MINERALS\VITAMINS
  10. VITAMIN D3 [Concomitant]
     Active Substance: CHOLECALCIFEROL
  11. Pepcid 20mg [Concomitant]

REACTIONS (2)
  - Transient ischaemic attack [None]
  - Intracardiac thrombus [None]

NARRATIVE: CASE EVENT DATE: 20230719
